FAERS Safety Report 16393647 (Version 2)
Quarter: 2019Q2

REPORT INFORMATION
  Report Type: Spontaneous
  Country: US (occurrence: US)
  Receive Date: 20190605
  Receipt Date: 20190618
  Transmission Date: 20190711
  Serious: No
  Sender: FDA-Public Use
  Company Number: US-PFIZER INC-2018303304

PATIENT
  Age: 68 Year
  Sex: Female
  Weight: 91 kg

DRUGS (2)
  1. DILANTIN [Suspect]
     Active Substance: PHENYTOIN
     Indication: EPILEPSY
     Dosage: 200 MG, 2X/DAY (2 CAPSULES IN THE MORNING AND 2 CAPSULES IN THE EVENING, TOTAL OF 4 PER DAY)
     Route: 048
  2. DILANTIN [Suspect]
     Active Substance: PHENYTOIN
     Indication: SEIZURE
     Dosage: 200 MG, 2X/DAY (2 CAPSULES IN THE MORNING AND 2 CAPSULES IN THE EVENING, TOTAL OF 4 PER DAY)
     Route: 048

REACTIONS (2)
  - Product dispensing error [Unknown]
  - Product dose omission [Unknown]
